FAERS Safety Report 8136119 (Version 4)
Quarter: 2013Q3

REPORT INFORMATION
  Report Type: Spontaneous
  Country: US (occurrence: US)
  Receive Date: 20110914
  Receipt Date: 20130918
  Transmission Date: 20140515
  Serious: Yes (Hospitalization)
  Sender: FDA-Public Use
  Company Number: US-GLAXOSMITHKLINE-A0893391A

PATIENT
  Sex: Female
  Weight: 105.5 kg

DRUGS (1)
  1. AVANDIA [Suspect]
     Indication: DIABETES MELLITUS
     Dosage: 8MG PER DAY
     Route: 048
     Dates: start: 200304, end: 200708

REACTIONS (3)
  - Coronary artery disease [Unknown]
  - Cardiac disorder [Unknown]
  - Cardiovascular disorder [Unknown]
